FAERS Safety Report 6421488-0 (Version None)
Quarter: 2009Q4

REPORT INFORMATION
  Report Type: 
  Country: None (occurrence: None)
  Receive Date: 20091030
  Receipt Date: 20091020
  Transmission Date: 20100525
  Serious: No
  Sender: FDA-Public Use
  Company Number: US-PFIZER INC-2009280561

PATIENT
  Sex: Female

DRUGS (2)
  1. CORTISONE [Suspect]
     Dosage: UNK
     Dates: end: 20091001
  2. LANTUS [Suspect]
     Indication: TYPE 2 DIABETES MELLITUS
     Dosage: 45 IU, 1X/DAY
     Route: 058

REACTIONS (3)
  - BLOOD GLUCOSE INCREASED [None]
  - GLOSSODYNIA [None]
  - OROPHARYNGEAL PAIN [None]
